FAERS Safety Report 8165688-0 (Version None)
Quarter: 2012Q1

REPORT INFORMATION
  Report Type: 
  Country: None (occurrence: None)
  Receive Date: 20120223
  Receipt Date: 20120223
  Transmission Date: 20120608
  Serious: Yes (Life-Threatening, Hospitalization)
  Sender: FDA-Public Use
  Company Number: None

PATIENT
  Age: 58 Year
  Sex: Female
  Weight: 66.6788 kg

DRUGS (1)
  1. NIFEDIPINE [Suspect]
     Indication: HYPERTENSION
     Dosage: ONE A DAY
     Dates: start: 19980101, end: 20110101

REACTIONS (5)
  - DIZZINESS [None]
  - ASTHENIA [None]
  - HEART RATE INCREASED [None]
  - WEIGHT DECREASED [None]
  - CARDIAC DISORDER [None]
